FAERS Safety Report 6370147-1 (Version None)
Quarter: 2009Q3

REPORT INFORMATION
  Report Type: 
  Country: None (occurrence: None)
  Receive Date: 20090923
  Receipt Date: 20090114
  Transmission Date: 20100115
  Serious: Yes (Other)
  Sender: FDA-Public Use
  Company Number: US-ASTRAZENECA-2006UW21281

PATIENT
  Age: 640 Month
  Sex: Female
  Weight: 70.3 kg

DRUGS (10)
  1. SEROQUEL [Suspect]
     Indication: BIPOLAR DISORDER
     Route: 048
     Dates: start: 19980101, end: 20040401
  2. SEROQUEL [Suspect]
     Indication: DEPRESSION
     Route: 048
     Dates: start: 19980101, end: 20040401
  3. SEROQUEL [Suspect]
     Indication: ANXIETY
     Route: 048
     Dates: start: 19980101, end: 20040401
  4. SEROQUEL [Suspect]
     Route: 048
     Dates: start: 20040101, end: 20050101
  5. SEROQUEL [Suspect]
     Route: 048
     Dates: start: 20040101, end: 20050101
  6. SEROQUEL [Suspect]
     Route: 048
     Dates: start: 20040101, end: 20050101
  7. ABILIFY [Concomitant]
     Dates: start: 20060928
  8. HALDOL [Concomitant]
     Dates: start: 19980101, end: 19990101
  9. ZYPREXA [Concomitant]
     Dates: start: 20061201
  10. DEPAKOTE [Concomitant]

REACTIONS (9)
  - BIPOLAR DISORDER [None]
  - BLOOD CHOLESTEROL INCREASED [None]
  - CONVULSION [None]
  - DIABETES MELLITUS [None]
  - GLYCOSURIA [None]
  - HYPERGLYCAEMIA [None]
  - HYPERTRIGLYCERIDAEMIA [None]
  - SCHIZOPHRENIA [None]
  - THYROID DISORDER [None]
